FAERS Safety Report 9007476 (Version 1)
Quarter: 2013Q1

REPORT INFORMATION
  Report Type: Spontaneous
  Country: US (occurrence: US)
  Receive Date: 20130111
  Receipt Date: 20130111
  Transmission Date: 20140127
  Serious: Yes (Other)
  Sender: FDA-Public Use
  Company Number: US-009507513-0909USA03207

PATIENT
  Age: 24 Year
  Sex: Male
  Weight: 70.31 kg

DRUGS (1)
  1. SINGULAIR [Suspect]
     Indication: MULTIPLE ALLERGIES
     Dosage: 10 MG, QD
     Route: 048
     Dates: start: 20081218, end: 20090110

REACTIONS (7)
  - Fear [Recovering/Resolving]
  - Depression [Recovering/Resolving]
  - Feeling abnormal [Recovering/Resolving]
  - Feeling of despair [Recovering/Resolving]
  - Irritability [Recovering/Resolving]
  - Paranoia [Recovering/Resolving]
  - Visual impairment [Recovering/Resolving]
